FAERS Safety Report 5678890-4 (Version None)
Quarter: 2008Q1

REPORT INFORMATION
  Report Type: 
  Country: None (occurrence: None)
  Receive Date: 20080325
  Receipt Date: 20080319
  Transmission Date: 20080703
  Serious: Yes (Hospitalization, Other)
  Sender: FDA-Public Use
  Company Number: SE-AVENTIS-200812488GDDC

PATIENT
  Age: 47 Year
  Sex: Female

DRUGS (3)
  1. FLAGYL [Suspect]
     Indication: INFECTION
     Route: 048
     Dates: start: 20060504, end: 20060701
  2. FLAGYL [Suspect]
     Route: 048
     Dates: start: 20060701, end: 20060802
  3. FLAGYL [Suspect]
     Route: 048
     Dates: start: 20060803, end: 20060806

REACTIONS (5)
  - CONDITION AGGRAVATED [None]
  - HEPATITIS [None]
  - JAW DISORDER [None]
  - PURULENCE [None]
  - SWELLING [None]
